FAERS Safety Report 7668149-8 (Version None)
Quarter: 2011Q3

REPORT INFORMATION
  Report Type: 
  Country: None (occurrence: None)
  Receive Date: 20110808
  Receipt Date: 20110802
  Transmission Date: 20111222
  Serious: Yes (Other)
  Sender: FDA-Public Use
  Company Number: CA-PFIZER INC-2011176220

PATIENT
  Sex: Female

DRUGS (1)
  1. ALDACTONE [Suspect]
     Dosage: UNK

REACTIONS (3)
  - OVARIAN CYST [None]
  - GYNAECOMASTIA [None]
  - VAGINAL HYPERPLASIA [None]
